FAERS Safety Report 6273030-5 (Version None)
Quarter: 2009Q3

REPORT INFORMATION
  Report Type: 
  Country: None (occurrence: None)
  Receive Date: 20090715
  Receipt Date: 20090715
  Transmission Date: 20100115
  Serious: No
  Sender: FDA-Public Use
  Company Number: None

PATIENT
  Sex: Female

DRUGS (1)
  1. ACTONEL [Suspect]
     Indication: OSTEOPOROSIS
     Dosage: TAKE 1 TABLET WEEKLY PO
     Route: 048
     Dates: start: 20040614, end: 20090714

REACTIONS (2)
  - BODY HEIGHT DECREASED [None]
  - BONE DENSITY DECREASED [None]
